FAERS Safety Report 6617248-8 (Version None)
Quarter: 2010Q1

REPORT INFORMATION
  Report Type: 
  Country: None (occurrence: None)
  Receive Date: 20100307
  Receipt Date: 20090709
  Transmission Date: 20100710
  Serious: No
  Sender: FDA-Public Use
  Company Number: US-BAYER-200912228NA

PATIENT
  Age: 26 Year
  Sex: Female

DRUGS (1)
  1. BETASERON [Suspect]
     Indication: RELAPSING-REMITTING MULTIPLE SCLEROSIS
     Dosage: TOTAL DAILY DOSE: 8 MIU
     Route: 058
     Dates: start: 20071228, end: 20080601

REACTIONS (6)
  - ABDOMINAL DISCOMFORT [None]
  - ASTHENIA [None]
  - ECTOPIC PREGNANCY [None]
  - HYPOPHAGIA [None]
  - NO ADVERSE EVENT [None]
  - WEIGHT DECREASED [None]
